FAERS Safety Report 4668406-3 (Version None)
Quarter: 2005Q2

REPORT INFORMATION
  Report Type: 
  Country: None (occurrence: None)
  Receive Date: 20050518
  Receipt Date: 20050426
  Transmission Date: 20051028
  Serious: Yes (Hospitalization)
  Sender: FDA-Public Use
  Company Number: B0360453A

PATIENT
  Sex: Male

DRUGS (4)
  1. PAXIL [Suspect]
     Dates: start: 19961101, end: 20021001
  2. DIAZEPAM [Suspect]
  3. THIORIDAZINE HCL [Concomitant]
  4. ZOPICLONE [Concomitant]

REACTIONS (7)
  - ANXIETY [None]
  - DEPRESSION [None]
  - DRUG WITHDRAWAL SYNDROME [None]
  - INSOMNIA [None]
  - INTENTIONAL MISUSE [None]
  - OVERDOSE [None]
  - SUICIDAL IDEATION [None]
